FAERS Safety Report 4865474-0 (Version None)
Quarter: 2005Q4

REPORT INFORMATION
  Report Type: 
  Country: None (occurrence: None)
  Receive Date: 20051223
  Receipt Date: 20051216
  Transmission Date: 20060501
  Serious: Yes (Other)
  Sender: FDA-Public Use
  Company Number: JP-ROCHE-429348

PATIENT
  Age: 83 Year
  Sex: Female

DRUGS (1)
  1. ROCEPHIN [Suspect]
     Indication: PYELONEPHRITIS
     Route: 042
     Dates: start: 20051127, end: 20051207

REACTIONS (1)
  - PANCREATITIS ACUTE [None]
